FAERS Safety Report 5183046-8 (Version None)
Quarter: 2006Q4

REPORT INFORMATION
  Report Type: 
  Country: None (occurrence: None)
  Receive Date: 20061220
  Receipt Date: 20051206
  Transmission Date: 20070319
  Serious: No
  Sender: FDA-Public Use
  Company Number: US-GLAXOSMITHKLINE-A0584792A

PATIENT
  Age: 31 Year
  Sex: Male

DRUGS (3)
  1. NICODERM CQ [Suspect]
     Indication: DRUG WITHDRAWAL MAINTENANCE THERAPY
  2. NICODERM CQ [Suspect]
     Indication: DRUG WITHDRAWAL MAINTENANCE THERAPY
     Dates: start: 20051204
  3. NICORETTE (MINT) [Suspect]

REACTIONS (4)
  - FEELING ABNORMAL [None]
  - FEELING HOT [None]
  - MALAISE [None]
  - NICOTINE DEPENDENCE [None]
